FAERS Safety Report 10388162 (Version 12)
Quarter: 2016Q2

REPORT INFORMATION
  Report Type: Spontaneous
  Country: US (occurrence: US)
  Receive Date: 20140815
  Receipt Date: 20160506
  Transmission Date: 20160815
  Serious: Yes (Hospitalization, Other)
  Sender: FDA-Public Use
  Company Number: US-GLAXOSMITHKLINE-A1084202A

PATIENT
  Age: 49 Year
  Sex: Male

DRUGS (33)
  1. ADVAIR HFA [Suspect]
     Active Substance: FLUTICASONE PROPIONATE\SALMETEROL XINAFOATE
     Dosage: UNK
  2. ADVAIR HFA [Suspect]
     Active Substance: FLUTICASONE PROPIONATE\SALMETEROL XINAFOATE
     Dosage: UNK UNK, U
     Dates: start: 2010
  3. ADVAIR HFA [Suspect]
     Active Substance: FLUTICASONE PROPIONATE\SALMETEROL XINAFOATE
     Dosage: 1 PUFF(S), BID
     Route: 055
  4. PREDNISONE. [Suspect]
     Active Substance: PREDNISONE
     Indication: PRODUCT USED FOR UNKNOWN INDICATION
     Dosage: UNKNOWN DOSING. UNIT REPORTED AS ^TABLET^.
     Route: 065
     Dates: start: 2014
  5. AVELOX [Concomitant]
     Active Substance: MOXIFLOXACIN HYDROCHLORIDE
  6. ADVAIR HFA [Suspect]
     Active Substance: FLUTICASONE PROPIONATE\SALMETEROL XINAFOATE
     Dosage: UNK
     Dates: start: 2008
  7. VENTOLIN [Suspect]
     Active Substance: ALBUTEROL SULFATE
     Dosage: UNK
  8. ADDERALL [Concomitant]
     Active Substance: AMPHETAMINE ASPARTATE\AMPHETAMINE SULFATE\DEXTROAMPHETAMINE SACCHARATE\DEXTROAMPHETAMINE SULFATE
  9. XANAX [Concomitant]
     Active Substance: ALPRAZOLAM
  10. ADVAIR HFA [Suspect]
     Active Substance: FLUTICASONE PROPIONATE\SALMETEROL XINAFOATE
     Dosage: 1 UNK, UNK
  11. VENTOLIN [Suspect]
     Active Substance: ALBUTEROL SULFATE
     Indication: ASTHMA
     Dosage: 3 PUFFS EVERY 4 HOURS AS REQUIRED.
     Route: 055
     Dates: start: 2003
  12. TESTOSTERONE. [Concomitant]
     Active Substance: TESTOSTERONE
     Route: 042
  13. OXYCODONE HYDROCHLORIDE. [Concomitant]
     Active Substance: OXYCODONE HYDROCHLORIDE
  14. ADVAIR HFA [Suspect]
     Active Substance: FLUTICASONE PROPIONATE\SALMETEROL XINAFOATE
     Indication: ASTHMA
     Dosage: 1 PUFF(S), BID
     Route: 055
     Dates: start: 2007
  15. ADVAIR HFA [Suspect]
     Active Substance: FLUTICASONE PROPIONATE\SALMETEROL XINAFOATE
     Indication: CHRONIC OBSTRUCTIVE PULMONARY DISEASE
     Dosage: UNK
  16. VENTOLIN [Suspect]
     Active Substance: ALBUTEROL SULFATE
     Dosage: UNK, PRN
     Route: 055
     Dates: start: 2005
  17. NEXIUM [Concomitant]
     Active Substance: ESOMEPRAZOLE MAGNESIUM
  18. VENTOLIN [Suspect]
     Active Substance: ALBUTEROL SULFATE
     Indication: CHRONIC OBSTRUCTIVE PULMONARY DISEASE
     Dosage: 90 UG, UNK
  19. VENTOLIN [Suspect]
     Active Substance: ALBUTEROL SULFATE
     Dosage: UNK, U
     Route: 065
  20. VENTOLIN [Suspect]
     Active Substance: ALBUTEROL SULFATE
     Dosage: UNK
  21. VENTOLIN [Suspect]
     Active Substance: ALBUTEROL SULFATE
     Dosage: UNK, PRN
     Route: 055
  22. VENTOLIN [Suspect]
     Active Substance: ALBUTEROL SULFATE
     Dosage: UNK
     Dates: start: 2006
  23. CYMBALTA [Concomitant]
     Active Substance: DULOXETINE HYDROCHLORIDE
  24. MOBIC [Concomitant]
     Active Substance: MELOXICAM
  25. ALBUTEROL. [Suspect]
     Active Substance: ALBUTEROL
     Indication: PRODUCT USED FOR UNKNOWN INDICATION
     Dosage: PRESCRIBED 1 VIAL FOUR TIMES A DAY. PATIENT TAKES AT 1 NEBULE TWICE A DAY.
     Route: 065
     Dates: start: 2014
  26. ATROVENT [Suspect]
     Active Substance: IPRATROPIUM BROMIDE
     Indication: PRODUCT USED FOR UNKNOWN INDICATION
     Dosage: PRESCRIBED 1 VIAL FOUR TIMES A DAY. PATIENT TAKES AT 1 NEBULE TWICE A DAY.
     Route: 065
     Dates: start: 2014
  27. DOXYCYCLINE. [Concomitant]
     Active Substance: DOXYCYCLINE
  28. SYNTHROID [Concomitant]
     Active Substance: LEVOTHYROXINE SODIUM
  29. XYZAL [Concomitant]
     Active Substance: LEVOCETIRIZINE DIHYDROCHLORIDE
  30. DEMEROL [Concomitant]
     Active Substance: MEPERIDINE HYDROCHLORIDE
  31. BUMETANIDE. [Concomitant]
     Active Substance: BUMETANIDE
  32. PHENERGAN [Concomitant]
     Active Substance: PROMETHAZINE HYDROCHLORIDE
  33. POTASSIUM CHLORIDE. [Concomitant]
     Active Substance: POTASSIUM CHLORIDE

REACTIONS (40)
  - Dyspnoea [Recovering/Resolving]
  - Abasia [Recovered/Resolved]
  - Aggression [Unknown]
  - Pharyngitis streptococcal [Unknown]
  - Hormone level abnormal [Unknown]
  - Osteoarthritis [Unknown]
  - Road traffic accident [Unknown]
  - Chronic obstructive pulmonary disease [Not Recovered/Not Resolved]
  - Pneumonia [Recovering/Resolving]
  - Testicular mass [Unknown]
  - Testicular malignant teratoma [Recovered/Resolved]
  - Bronchitis [Unknown]
  - Productive cough [Unknown]
  - Suture insertion [Not Recovered/Not Resolved]
  - Testis cancer [Unknown]
  - Drug ineffective [Recovered/Resolved]
  - Testicular neoplasm [Unknown]
  - Adverse drug reaction [Unknown]
  - Asthma [Unknown]
  - Wheezing [Unknown]
  - Pain [Recovering/Resolving]
  - Spinal osteoarthritis [Unknown]
  - Peripheral swelling [Unknown]
  - Blood testosterone abnormal [Unknown]
  - Surgery [Unknown]
  - Orchidectomy [Unknown]
  - Hospitalisation [Unknown]
  - Treatment noncompliance [Unknown]
  - Drug dose omission [Unknown]
  - Stress [Unknown]
  - Retching [Unknown]
  - Intervertebral disc protrusion [Unknown]
  - Biopsy tongue [Unknown]
  - Disability [Unknown]
  - Testicular swelling [Recovered/Resolved]
  - Inhalation therapy [Unknown]
  - Throat lesion [Unknown]
  - Overdose [Unknown]
  - Fluid retention [Unknown]
  - Vascular insufficiency [Unknown]

NARRATIVE: CASE EVENT DATE: 2000
